FAERS Safety Report 7293792-8 (Version None)
Quarter: 2011Q1

REPORT INFORMATION
  Report Type: 
  Country: None (occurrence: None)
  Receive Date: 20110204
  Receipt Date: 20110120
  Transmission Date: 20110831
  Serious: Yes (Death)
  Sender: FDA-Public Use
  Company Number: APP201100064

PATIENT
  Age: 58 Year
  Sex: Male

DRUGS (3)
  1. ASTRAMORPH/PF (MORPHINE SULFATE) [Suspect]
     Indication: PRODUCT USED FOR UNKNOWN INDICATION
  2. PROPOXYPHENE (DEXTROPROPOXYPHENE) [Suspect]
     Indication: PRODUCT USED FOR UNKNOWN INDICATION
  3. PSEUDOEPHEDRINE HCL [Suspect]
     Indication: PRODUCT USED FOR UNKNOWN INDICATION

REACTIONS (1)
  - TOXICITY TO VARIOUS AGENTS [None]
